FAERS Safety Report 10102536 (Version 2)
Quarter: 2014Q2

REPORT INFORMATION
  Report Type: Spontaneous
  Country: US (occurrence: US)
  Receive Date: 20140424
  Receipt Date: 20140516
  Transmission Date: 20141212
  Serious: No
  Sender: FDA-Public Use
  Company Number: US-PFIZER INC-2014114292

PATIENT
  Age: 64 Year
  Sex: Male

DRUGS (15)
  1. SUTENT [Suspect]
     Indication: RENAL CELL CARCINOMA
     Dosage: 50 MG DAILY 4 WEEKS ON / 2 WEEKS OFF
     Route: 048
     Dates: start: 20140318
  2. SUTENT [Suspect]
     Dosage: 50 MG, UNK
     Dates: start: 20140403
  3. SUTENT [Suspect]
     Dosage: 50 MG, CYCLIC (DAILY 1-28 W/14 DAYS)
     Route: 048
     Dates: start: 20140407
  4. OXYCODONE HYDROCHLORIDE [Concomitant]
     Dosage: UNK
  5. HYDROCODONE W/ACETAMINOPHEN [Concomitant]
     Dosage: UNK
  6. POLYETHYLENE GLYCOL 4500 [Concomitant]
     Dosage: UNK
  7. LISINOPRIL W/HYDROCHLOROTHIAZIDE [Concomitant]
     Indication: HYPERTENSION
     Dosage: 1 TAB (10 MG/12.5) 1X/DAY
     Route: 048
     Dates: start: 2008
  8. OXYCONTIN SR [Concomitant]
     Indication: PAIN
     Dosage: 10 MG, EVERY 4 HOURS IF NEEDED
     Route: 048
  9. OXYCODONE [Concomitant]
     Indication: PAIN
     Dosage: 5 MG TAB, 2 TAB, EVERY 4 HOURS IF NEEDED
     Route: 048
  10. OXYCODONE [Concomitant]
     Dosage: 5 MG TAB, 1-2 TAB, EVERY 4 HOURS IF NEEDED
  11. DOCUSATE SODIUM [Concomitant]
     Dosage: 100 MG, 2X/DAY
     Route: 048
  12. MIRALAX [Concomitant]
     Dosage: 17 G, DAILY EVERY DAY
     Route: 048
  13. CENTRUM [Concomitant]
     Dosage: 1 DF, DAILY
  14. TYLENOL [Concomitant]
     Dosage: 650 MG, EVEY 4 HOURS IF NEEDED)
     Route: 048
  15. PEPCID OTC [Concomitant]
     Dosage: AS NEEDED

REACTIONS (1)
  - Nausea [Recovered/Resolved]
